FAERS Safety Report 5886616-4 (Version None)
Quarter: 2008Q3

REPORT INFORMATION
  Report Type: 
  Country: None (occurrence: None)
  Receive Date: 20080917
  Receipt Date: 20080905
  Transmission Date: 20090109
  Serious: Yes (Other)
  Sender: FDA-Public Use
  Company Number: PHBS2006ES17732

PATIENT
  Age: 67 Year
  Sex: Female

DRUGS (5)
  1. ZOLEDRONIC ACID [Suspect]
     Indication: METASTASES TO BONE
     Dosage: 4 MG GIVEN FOR 15 MIN EVERY 3 OR 4 WEEKS
     Route: 042
  2. CALCIUM [Concomitant]
     Route: 048
  3. VITAMIN D [Concomitant]
     Route: 048
  4. ANASTROZOLE [Concomitant]
     Route: 065
  5. CHLORHEXIDINE GLUCONATE [Concomitant]
     Route: 065

REACTIONS (4)
  - BONE DISORDER [None]
  - ORAL PAIN [None]
  - OSTEONECROSIS [None]
  - TOOTH EXTRACTION [None]
